FAERS Safety Report 26051984 (Version 1)
Quarter: 2025Q4

REPORT INFORMATION
  Report Type: Spontaneous
  Country: US (occurrence: US)
  Receive Date: 20251117
  Receipt Date: 20251117
  Transmission Date: 20260118
  Serious: Yes (Hospitalization, Other)
  Sender: MEITHEAL PHARMACEUTICALS
  Company Number: US-MEITHEAL-2025MPLIT00428

PATIENT
  Age: 21 Year
  Sex: Female
  Weight: 52 kg

DRUGS (8)
  1. DEXMEDETOMIDINE [Suspect]
     Active Substance: DEXMEDETOMIDINE
     Indication: Anaesthesia procedure
     Dosage: 1 MCG/KG
     Route: 042
  2. DEXMEDETOMIDINE [Suspect]
     Active Substance: DEXMEDETOMIDINE
     Dosage: ADJUSTED TO 0.6 MCG/KG/ H
     Route: 042
  3. GLYCOPYRROLATE [Suspect]
     Active Substance: GLYCOPYRROLATE
     Indication: Bradycardia
     Dosage: 2 SHOTS 3 MINUTES APART
     Route: 042
  4. FENTANYL [Concomitant]
     Active Substance: FENTANYL
     Dosage: 25 MCG
     Route: 042
  5. HEPARIN [Concomitant]
     Active Substance: HEPARIN SODIUM
     Indication: Product used for unknown indication
     Route: 042
  6. HEPARIN [Concomitant]
     Active Substance: HEPARIN SODIUM
     Route: 042
  7. HEPARIN [Concomitant]
     Active Substance: HEPARIN SODIUM
     Dosage: 20 U/KG/H
     Route: 042
  8. FONDAPARINUX [Concomitant]
     Active Substance: FONDAPARINUX
     Indication: Product used for unknown indication
     Route: 065

REACTIONS (3)
  - Acute pulmonary oedema [Recovered/Resolved]
  - Hypertensive crisis [Recovered/Resolved]
  - Drug interaction [Unknown]
